FAERS Safety Report 8990300 (Version 2)
Quarter: 2016Q3

REPORT INFORMATION
  Report Type: Spontaneous
  Country: CA (occurrence: CA)
  Receive Date: 20121228
  Receipt Date: 20160707
  Transmission Date: 20161109
  Serious: Yes (Hospitalization, Other)
  Sender: FDA-Public Use
  Company Number: CA-009507513-1212CAN010928

PATIENT
  Age: 68 Year
  Sex: Male

DRUGS (1)
  1. ONCOTICE [Suspect]
     Active Substance: BACILLUS CALMETTE-GUERIN SUBSTRAIN TICE LIVE ANTIGEN
     Indication: BLADDER CANCER STAGE 0, WITH CANCER IN SITU
     Dosage: 1-8 X 108 COLONY FORMING UNITS WEEKLY FOR SIX SESSIONS
     Route: 043

REACTIONS (3)
  - Psoas abscess [Recovered/Resolved]
  - Disseminated Bacillus Calmette-Guerin infection [Unknown]
  - Aortic aneurysm rupture [Unknown]

NARRATIVE: CASE EVENT DATE: 2011
